FAERS Safety Report 5206056-0 (Version None)
Quarter: 2007Q1

REPORT INFORMATION
  Report Type: 
  Country: None (occurrence: None)
  Receive Date: 20070105
  Receipt Date: 20070105
  Transmission Date: 20070707
  Serious: Yes (Hospitalization)
  Sender: FDA-Public Use
  Company Number: None

PATIENT
  Age: 24 Year
  Sex: Female
  Weight: 67.6 kg

DRUGS (8)
  1. HEPARIN [Suspect]
     Indication: PULMONARY EMBOLISM
     Dosage: 12000 U  TID  / SUB-Q  PRIOR TO ADMISSION
     Route: 058
  2. PREDNISONE [Concomitant]
  3. CARVEDILOL [Concomitant]
  4. IRBESARTAN [Concomitant]
  5. NIFEDIPINE [Concomitant]
  6. FUROSEMIDE [Concomitant]
  7. DOCUSATE SODIUM [Concomitant]
  8. HYDROXYCHLOROQUINE SULFATE [Concomitant]

REACTIONS (4)
  - ACTIVATED PARTIAL THROMBOPLASTIN TIME PROLONGED [None]
  - DRUG EXPOSURE DURING PREGNANCY [None]
  - PULMONARY EMBOLISM [None]
  - VOMITING [None]
